FAERS Safety Report 9227646 (Version 1)
Quarter: 2013Q1

REPORT INFORMATION
  Report Type: Spontaneous
  Country: US (occurrence: None)
  Receive Date: 20121012
  Receipt Date: 20121012
  Transmission Date: 20140127
  Serious: Yes (Other)
  Sender: FDA-Public Use
  Company Number: 1000030827

PATIENT
  Age: 48 Year
  Sex: Male

DRUGS (12)
  1. LEXAPRO [Suspect]
  2. ESCITALOPRAM [Suspect]
  3. LIPITOR (ATORVASTATIN CALCIUM) [Suspect]
     Indication: MYOCARDIAL INFARCTION
     Dosage: (80 MG, 1 IN 1 D)
     Dates: start: 20090507
  4. ALPRAZOLAM (ALPRAZOLAM) [Suspect]
     Dates: start: 2009
  5. CARVEDILOL [Suspect]
  6. UNSPECIFIED [Suspect]
  7. NITROSTAT( NITROGLYCERIN) (NITROGLYCERIN) [Concomitant]
  8. ASPIRIN (ACETYLSALICYLIC ACID) (ACETYLSALICYLIC ACID) [Concomitant]
  9. QUINAPRIL (QUINAPRIL) (QUINAPRIL) [Concomitant]
  10. PLAVIX (CLOPIDOGREL BISULFATE) (CLOPIDOGREL BISULFATE) [Concomitant]
  11. XANAX (ALPRAZOLAM) (ALPRAZOLAM) [Concomitant]
  12. COREG (CARVEDILOL) (CARVEDILOL) [Concomitant]

REACTIONS (3)
  - Hypersensitivity [None]
  - Pyrexia [None]
  - Unevaluable event [None]
